FAERS Safety Report 14354601 (Version 1)
Quarter: 2018Q1

REPORT INFORMATION
  Report Type: Spontaneous
  Country: JP (occurrence: JP)
  Receive Date: 20180105
  Receipt Date: 20180105
  Transmission Date: 20180509
  Serious: Yes (Other)
  Sender: FDA-Public Use
  Company Number: JP-ROCHE-2050873

PATIENT
  Sex: Female
  Weight: 57 kg

DRUGS (7)
  1. LAC-B [Concomitant]
     Active Substance: BIFIDOBACTERIUM SPP.
     Indication: COLITIS ULCERATIVE
     Route: 048
     Dates: end: 201711
  2. PARIET [Concomitant]
     Active Substance: RABEPRAZOLE SODIUM
     Indication: GASTRIC ULCER
     Route: 048
     Dates: start: 20130304, end: 20170410
  3. INCREMIN (JAPAN) [Concomitant]
     Indication: ANAEMIA
     Route: 048
     Dates: start: 20170908, end: 20171103
  4. ACTEMRA [Suspect]
     Active Substance: TOCILIZUMAB
     Indication: RHEUMATOID ARTHRITIS
     Route: 041
     Dates: start: 200806, end: 20170925
  5. PREDNISOLONE. [Concomitant]
     Active Substance: PREDNISOLONE
     Indication: RHEUMATOID ARTHRITIS
     Route: 048
     Dates: end: 201711
  6. LAC-B [Concomitant]
     Active Substance: BIFIDOBACTERIUM SPP.
     Indication: COLITIS ULCERATIVE
     Route: 048
     Dates: start: 20171118, end: 20171118
  7. PREDNISOLONE. [Concomitant]
     Active Substance: PREDNISOLONE
     Indication: RHEUMATOID ARTHRITIS
     Route: 048
     Dates: start: 20171118, end: 20171118

REACTIONS (2)
  - Abortion spontaneous [Unknown]
  - Maternal exposure during pregnancy [Unknown]
